FAERS Safety Report 5511610-2 (Version None)
Quarter: 2007Q4

REPORT INFORMATION
  Report Type: 
  Country: None (occurrence: None)
  Receive Date: 20071109
  Receipt Date: 20071101
  Transmission Date: 20080405
  Serious: Yes (Death, Other)
  Sender: FDA-Public Use
  Company Number: JP-ELI_LILLY_AND_COMPANY-JP200710007118

PATIENT
  Sex: Male
  Weight: 51.7 kg

DRUGS (4)
  1. PEMETREXED [Suspect]
     Indication: PLEURAL MESOTHELIOMA MALIGNANT
     Dosage: UNK, UNK
     Route: 042
     Dates: start: 20071004
  2. PARAPLATIN [Concomitant]
     Indication: PLEURAL MESOTHELIOMA MALIGNANT
     Dosage: UNK, UNK
     Route: 042
     Dates: start: 20071004
  3. FOLIC ACID [Concomitant]
  4. VITAMIN B-12 [Concomitant]

REACTIONS (3)
  - BLOOD SODIUM DECREASED [None]
  - BONE MARROW FAILURE [None]
  - SEPSIS [None]
